FAERS Safety Report 14826868 (Version 1)
Quarter: 2018Q2

REPORT INFORMATION
  Report Type: Spontaneous
  Country: US (occurrence: US)
  Receive Date: 20180405
  Receipt Date: 20180405
  Transmission Date: 20180711
  Serious: Yes (Disabling)
  Sender: FDA-Public Use
  Company Number: None

PATIENT
  Age: 24 Year
  Sex: Female
  Weight: 63.5 kg

DRUGS (7)
  1. VITAMIN D2 [Concomitant]
     Active Substance: ERGOCALCIFEROL
  2. INTRAUTERINE COPPER CONTRACEPTIVE [Suspect]
     Active Substance: COPPER
     Dates: start: 20170314, end: 20180404
  3. KLONOPIN [Suspect]
     Active Substance: CLONAZEPAM
  4. VITAMIN B COMPLEX [Concomitant]
     Active Substance: CYANOCOBALAMIN\DEXPANTHENOL\NIACINAMIDE\PYRIDOXINE HYDROCHLORIDE\RIBOFLAVIN 5^-PHOSPHATE SODIUM\THIAMINE HYDROCHLORIDE\VITAMIN B COMPLEX
  5. OMEGA-3 ACIDS [Concomitant]
     Active Substance: OMEGA-3 FATTY ACIDS
  6. LAMICTAL [Concomitant]
     Active Substance: LAMOTRIGINE
  7. ZOLOFT [Concomitant]
     Active Substance: SERTRALINE HYDROCHLORIDE

REACTIONS (9)
  - Anxiety [None]
  - Panic attack [None]
  - Hypomania [None]
  - Depressed mood [None]
  - Muscle spasms [None]
  - Menorrhagia [None]
  - Metrorrhagia [None]
  - Mood swings [None]
  - Quality of life decreased [None]

NARRATIVE: CASE EVENT DATE: 20170331
